FAERS Safety Report 11155268 (Version 1)
Quarter: 2015Q2

REPORT INFORMATION
  Report Type: Spontaneous
  Country: US (occurrence: None)
  Receive Date: 20150601
  Receipt Date: 20150601
  Transmission Date: 20150821
  Serious: Yes (Hospitalization)
  Sender: FDA-Public Use
  Company Number: None

PATIENT
  Age: 88 Year
  Sex: Male
  Weight: 48.7 kg

DRUGS (1)
  1. ASPIRIN. [Suspect]
     Active Substance: ASPIRIN
     Indication: ATRIAL FIBRILLATION
     Route: 048
     Dates: start: 20141219

REACTIONS (8)
  - Gastric haemorrhage [None]
  - Anaemia [None]
  - Foreign body [None]
  - Peptic ulcer [None]
  - Iron deficiency anaemia [None]
  - Colon adenoma [None]
  - Duodenal ulcer haemorrhage [None]
  - Gastrointestinal tract irritation [None]

NARRATIVE: CASE EVENT DATE: 20150415
